FAERS Safety Report 25739999 (Version 1)
Quarter: 2025Q3

REPORT INFORMATION
  Report Type: Spontaneous
  Country: CA (occurrence: CA)
  Receive Date: 20250829
  Receipt Date: 20250829
  Transmission Date: 20251021
  Serious: Yes (Hospitalization, Other)
  Sender: TEVA
  Company Number: CA-TEVA-VS-3367478

PATIENT
  Age: 52 Year
  Sex: Female

DRUGS (8)
  1. OLANZAPINE [Suspect]
     Active Substance: OLANZAPINE
     Indication: Product used for unknown indication
     Route: 065
  2. APTIVUS [Suspect]
     Active Substance: TIPRANAVIR
     Indication: Product used for unknown indication
     Route: 065
  3. ABACAVIR SULFATE; LAMIVUDINE [Concomitant]
     Indication: Product used for unknown indication
  4. LAMIVUDINE [Concomitant]
     Active Substance: LAMIVUDINE
     Indication: Product used for unknown indication
  5. QUETIAPINE [Suspect]
     Active Substance: QUETIAPINE
     Indication: Psychotic disorder
     Route: 065
  6. DIAZEPAM [Suspect]
     Active Substance: DIAZEPAM
     Indication: HIV infection
     Route: 065
  7. CLONAZEPAM [Suspect]
     Active Substance: CLONAZEPAM
     Indication: Hypomania
     Route: 065
  8. ACETAMINOPHEN [Suspect]
     Active Substance: ACETAMINOPHEN
     Indication: Product used for unknown indication
     Route: 065

REACTIONS (7)
  - Pneumonia [Unknown]
  - Vomiting [Unknown]
  - Nausea [Unknown]
  - Pain in extremity [Unknown]
  - Off label use [Unknown]
  - Cholelithiasis [Unknown]
  - Schizophrenia [Unknown]
